FAERS Safety Report 8341462-7 (Version None)
Quarter: 2012Q2

REPORT INFORMATION
  Report Type: 
  Country: None (occurrence: None)
  Receive Date: 20120507
  Receipt Date: 20120430
  Transmission Date: 20120825
  Serious: No
  Sender: FDA-Public Use
  Company Number: US-B.I. PHARMACEUTICALS,INC./RIDGEFIELD-2012-BP-09985BP

PATIENT
  Age: 57 Year
  Sex: Female

DRUGS (6)
  1. VIIBRYD [Suspect]
     Dosage: 40 MG
     Route: 048
     Dates: start: 20120313, end: 20120401
  2. MOBIC [Suspect]
     Indication: PAIN
     Dates: start: 20120201, end: 20120401
  3. VIIBRYD [Suspect]
     Dosage: 20 MG
     Route: 048
     Dates: start: 20120402
  4. TRAZODONE HCL [Concomitant]
     Route: 048
  5. VIIBRYD [Suspect]
     Indication: DEPRESSION
     Dosage: 10 MG
     Route: 048
     Dates: start: 20120228, end: 20120305
  6. ABILIFY [Concomitant]
     Dosage: 5 MG
     Route: 048

REACTIONS (1)
  - SWELLING [None]
